FAERS Safety Report 6965287-X (Version None)
Quarter: 2010Q3

REPORT INFORMATION
  Report Type: 
  Country: None (occurrence: None)
  Receive Date: 20100903
  Receipt Date: 20100831
  Transmission Date: 20110219
  Serious: Yes (Death, Disabling)
  Sender: FDA-Public Use
  Company Number: JP-B.I. PHARMACEUTICALS,INC./RIDGEFIELD-2010-BP-09469NB

PATIENT
  Sex: Male

DRUGS (9)
  1. MICARDIS [Suspect]
     Indication: HYPERTENSION
     Dosage: 40 MG
     Route: 048
     Dates: start: 20100804, end: 20100819
  2. GASTER [Concomitant]
     Indication: GASTRITIS
     Dosage: 20 MG
     Route: 048
     Dates: start: 20100701, end: 20100819
  3. LAC-B [Concomitant]
     Indication: DIARRHOEA
     Dosage: 3 G
     Route: 048
     Dates: start: 20100701, end: 20100819
  4. URSO 250 [Concomitant]
     Indication: HEPATIC FUNCTION ABNORMAL
     Dosage: 300 MG
     Route: 048
     Dates: start: 20100701, end: 20100727
  5. PENTCILLIN [Concomitant]
     Indication: PNEUMONIA
     Dosage: 4 G
     Route: 042
     Dates: start: 20100703, end: 20100707
  6. LASIX [Concomitant]
     Indication: HYPERTENSION
     Dosage: 20 MG
     Route: 042
     Dates: start: 20100710, end: 20100720
  7. LASIX [Concomitant]
     Dosage: 20 MG
     Route: 048
     Dates: start: 20100721, end: 20100818
  8. LEVOFLOXACIN [Concomitant]
     Indication: URINARY TRACT INFECTION
     Dosage: 500 MG
     Route: 048
     Dates: start: 20100715, end: 20100719
  9. ALDACTONE [Concomitant]
     Indication: HYPERTENSION
     Dosage: 25 MG
     Route: 048
     Dates: start: 20100721, end: 20100818

REACTIONS (2)
  - PNEUMONIA [None]
  - RENAL DISORDER [None]
